FAERS Safety Report 8599634 (Version 3)
Quarter: 2013Q3

REPORT INFORMATION
  Report Type: Report from Study
  Country: GB (occurrence: GB)
  Receive Date: 20120605
  Receipt Date: 20130919
  Transmission Date: 20140515
  Serious: Yes (Death, Hospitalization, Other)
  Sender: FDA-Public Use
  Company Number: GB-ROCHE-1075036

PATIENT
  Age: 77 Year
  Sex: Male

DRUGS (5)
  1. RANIBIZUMAB [Suspect]
     Indication: AGE-RELATED MACULAR DEGENERATION
     Route: 050
     Dates: start: 20080719, end: 20111230
  2. AMLODIPINE [Concomitant]
     Route: 065
     Dates: start: 2004
  3. AMLODIPINE [Concomitant]
     Route: 065
     Dates: start: 20120402
  4. ATENOLOL [Concomitant]
     Route: 065
     Dates: start: 2004
  5. ATENOLOL [Concomitant]
     Route: 065
     Dates: start: 20120402

REACTIONS (6)
  - Acute myocardial infarction [Fatal]
  - Left ventricular failure [Unknown]
  - Renal failure acute [Unknown]
  - Pulmonary oedema [Unknown]
  - Hypertension [Recovered/Resolved]
  - White blood cell count increased [Unknown]
